FAERS Safety Report 7240796-7 (Version None)
Quarter: 2011Q1

REPORT INFORMATION
  Report Type: 
  Country: None (occurrence: None)
  Receive Date: 20110120
  Receipt Date: 20110120
  Transmission Date: 20110831
  Serious: Yes (Life-Threatening, Hospitalization)
  Sender: FDA-Public Use
  Company Number: None

PATIENT
  Sex: Female
  Weight: 62.5964 kg

DRUGS (1)
  1. ROCEPHIN [Suspect]

REACTIONS (3)
  - CARDIAC FAILURE [None]
  - TREMOR [None]
  - PNEUMONIA [None]
